FAERS Safety Report 10010535 (Version 1)
Quarter: 2014Q1

REPORT INFORMATION
  Report Type: Report from Study
  Country: FR (occurrence: FR)
  Receive Date: 20140314
  Receipt Date: 20140314
  Transmission Date: 20141002
  Serious: Yes (Hospitalization)
  Sender: FDA-Public Use
  Company Number: FR-ROCHE-1361838

PATIENT
  Sex: Female

DRUGS (31)
  1. RITUXIMAB [Suspect]
     Indication: RHEUMATOID ARTHRITIS
     Route: 042
     Dates: start: 20061106
  2. RITUXIMAB [Suspect]
     Route: 042
     Dates: start: 20061120
  3. RITUXIMAB [Suspect]
     Route: 042
     Dates: start: 20070607
  4. RITUXIMAB [Suspect]
     Route: 042
     Dates: start: 20070621
  5. RITUXIMAB [Suspect]
     Route: 042
     Dates: start: 20080428
  6. RITUXIMAB [Suspect]
     Route: 042
     Dates: start: 20080513
  7. RITUXIMAB [Suspect]
     Route: 042
     Dates: start: 20090120
  8. RITUXIMAB [Suspect]
     Route: 042
     Dates: start: 20090203
  9. RITUXIMAB [Suspect]
     Route: 042
     Dates: start: 20100422
  10. RITUXIMAB [Suspect]
     Route: 042
     Dates: start: 20100507
  11. RITUXIMAB [Suspect]
     Route: 042
     Dates: start: 20101104
  12. RITUXIMAB [Suspect]
     Route: 042
     Dates: start: 20101118
  13. RITUXIMAB [Suspect]
     Route: 042
     Dates: start: 20110509
  14. RITUXIMAB [Suspect]
     Route: 042
     Dates: start: 20110523
  15. RITUXIMAB [Suspect]
     Route: 042
     Dates: start: 20120420
  16. RITUXIMAB [Suspect]
     Route: 042
     Dates: start: 20120503
  17. RITUXIMAB [Suspect]
     Route: 042
     Dates: start: 20121205
  18. RITUXIMAB [Suspect]
     Route: 042
     Dates: start: 20130107
  19. METHOTREXATE [Concomitant]
     Dosage: 15MG/WEEK
     Route: 065
     Dates: start: 20061106
  20. METHOTREXATE [Concomitant]
     Dosage: 15MG/WEEK
     Route: 065
     Dates: start: 20061120
  21. METHOTREXATE [Concomitant]
     Dosage: 15MG/WEEK
     Route: 065
     Dates: start: 20070607
  22. METHOTREXATE [Concomitant]
     Dosage: 15MG/WEEK
     Route: 065
     Dates: start: 20070621
  23. METHOTREXATE [Concomitant]
     Dosage: 15MG/WEEK
     Route: 065
     Dates: start: 20080428
  24. METHOTREXATE [Concomitant]
     Dosage: 15MG/WEEK
     Route: 065
     Dates: start: 20080513
  25. METHOTREXATE [Concomitant]
     Dosage: 15MG/WEEK
     Route: 065
     Dates: start: 20090120
  26. METHOTREXATE [Concomitant]
     Dosage: 15MG/WEEK
     Route: 065
     Dates: start: 20090203
  27. CORTANCYL [Concomitant]
     Route: 065
     Dates: start: 20061106
  28. CORTANCYL [Concomitant]
     Route: 065
     Dates: start: 20061120
  29. PARACETAMOL [Concomitant]
  30. ACTISKENAN [Concomitant]
  31. SKENAN [Concomitant]

REACTIONS (8)
  - Foot deformity [Recovered/Resolved]
  - Infusion related reaction [Recovered/Resolved]
  - Headache [Recovered/Resolved]
  - Interstitial lung disease [Recovered/Resolved]
  - Gastroenteritis [Recovered/Resolved]
  - Drug dependence [Not Recovered/Not Resolved]
  - Eczema [Not Recovered/Not Resolved]
  - Dry skin [Not Recovered/Not Resolved]
